FAERS Safety Report 6247560-6 (Version None)
Quarter: 2009Q2

REPORT INFORMATION
  Report Type: 
  Country: None (occurrence: None)
  Receive Date: 20090626
  Receipt Date: 20090617
  Transmission Date: 20091009
  Serious: Yes (Death)
  Sender: FDA-Public Use
  Company Number: CN-PFIZER INC-2009229479

PATIENT
  Age: 5 Month

DRUGS (1)
  1. SOLU-MEDROL [Suspect]
     Dates: start: 20090601, end: 20090601

REACTIONS (3)
  - BIOPSY HEART ABNORMAL [None]
  - LYMPHOCYTIC INFILTRATION [None]
  - SUDDEN INFANT DEATH SYNDROME [None]
